FAERS Safety Report 10239484 (Version 4)
Quarter: 2015Q2

REPORT INFORMATION
  Report Type: Spontaneous
  Country: US (occurrence: US)
  Receive Date: 20140616
  Receipt Date: 20150430
  Transmission Date: 20150821
  Serious: Yes (Disabling)
  Sender: FDA-Public Use
  Company Number: US-009507513-1406USA007807

PATIENT
  Sex: Male
  Weight: 87.75 kg

DRUGS (6)
  1. FINASTERIDE. [Suspect]
     Active Substance: FINASTERIDE
     Dosage: 1/4 OF 5MG TAB DAILY, 1.25MG
     Route: 048
  2. PROSCAR [Suspect]
     Active Substance: FINASTERIDE
     Dosage: 1/4 OF 5MG TAB DAILY, 1.25MG
     Route: 048
     Dates: start: 20040122, end: 20080911
  3. PROSCAR [Suspect]
     Active Substance: FINASTERIDE
     Dosage: 1/2 OF 5MG TAB DAILY, 2.5MG
     Route: 048
     Dates: start: 20080911, end: 20120413
  4. FINASTERIDE. [Suspect]
     Active Substance: FINASTERIDE
     Indication: ANDROGENETIC ALOPECIA
     Dosage: 5 MG, UNK
     Route: 048
     Dates: start: 2006, end: 20111123
  5. PROSCAR [Suspect]
     Active Substance: FINASTERIDE
     Indication: ANDROGENETIC ALOPECIA
     Dosage: 5 MG, UNK
     Route: 048
     Dates: start: 20010316
  6. FINASTERIDE. [Suspect]
     Active Substance: FINASTERIDE
     Dosage: 1/2 OF 5MG TAB DAILY, 2.5MG
     Route: 048

REACTIONS (46)
  - Haemangioma of skin [Unknown]
  - Benign neoplasm of eyelid [Unknown]
  - Weight decreased [Unknown]
  - Candida infection [Unknown]
  - Thyroid disorder [Unknown]
  - Decreased interest [Unknown]
  - Cognitive disorder [Not Recovered/Not Resolved]
  - Sexual dysfunction [Not Recovered/Not Resolved]
  - Memory impairment [Unknown]
  - Dissociation [Unknown]
  - Chronic fatigue syndrome [Not Recovered/Not Resolved]
  - Disturbance in attention [Unknown]
  - Melanocytic naevus [Unknown]
  - Papule [Unknown]
  - Chest pain [Unknown]
  - Inflammation [Not Recovered/Not Resolved]
  - Selective IgA immunodeficiency [Unknown]
  - Nasal septum deviation [Unknown]
  - Food poisoning [Unknown]
  - Anxiety [Not Recovered/Not Resolved]
  - Ejaculation failure [Not Recovered/Not Resolved]
  - Melanocytic naevus [Unknown]
  - Keratosis pilaris [Unknown]
  - Flushing [Unknown]
  - Tonsillectomy [Unknown]
  - Apathy [Unknown]
  - Wrong technique in drug usage process [Unknown]
  - Abnormal dreams [Unknown]
  - Ejaculation disorder [Not Recovered/Not Resolved]
  - Libido decreased [Not Recovered/Not Resolved]
  - Anhedonia [Unknown]
  - Partner stress [Unknown]
  - Feeling abnormal [Not Recovered/Not Resolved]
  - Depression [Not Recovered/Not Resolved]
  - Drug administration error [Unknown]
  - Melanocytic naevus [Unknown]
  - Sexual inhibition [Unknown]
  - Dermal cyst [Unknown]
  - Social phobia [Unknown]
  - Infection [Unknown]
  - Malabsorption [Unknown]
  - Asthma [Unknown]
  - Erectile dysfunction [Not Recovered/Not Resolved]
  - Laceration [Unknown]
  - Stress [Unknown]
  - Drug ineffective [Unknown]

NARRATIVE: CASE EVENT DATE: 2001
